FAERS Safety Report 18418233 (Version 1)
Quarter: 2020Q4

REPORT INFORMATION
  Report Type: Report from Study
  Country: AU (occurrence: AU)
  Receive Date: 20201023
  Receipt Date: 20201023
  Transmission Date: 20210114
  Serious: Yes (Other)
  Sender: FDA-Public Use
  Company Number: AU-SA-2020SA284802

PATIENT

DRUGS (4)
  1. RIFAMPICIN [Interacting]
     Active Substance: RIFAMPIN
     Dosage: 300 MG, QD; 3.0 MG/KG
  2. CLARITHROMYCIN. [Interacting]
     Active Substance: CLARITHROMYCIN
     Indication: MYCOBACTERIUM ULCERANS INFECTION
     Dosage: 500 MG, BID
  3. RIFAMPICIN [Suspect]
     Active Substance: RIFAMPIN
     Indication: MYCOBACTERIUM ULCERANS INFECTION
     Dosage: 600 MG, QD
  4. CLARITHROMYCIN. [Interacting]
     Active Substance: CLARITHROMYCIN
     Dosage: 250 MG, BID; 5.1 MG/KG

REACTIONS (7)
  - Immune reconstitution inflammatory syndrome [Unknown]
  - Treatment failure [Unknown]
  - Hepatic cirrhosis [Unknown]
  - Hepatotoxicity [Unknown]
  - Drug interaction [Unknown]
  - Paradoxical drug reaction [Unknown]
  - Incorrect dose administered [Unknown]
